FAERS Safety Report 21986473 (Version 1)
Quarter: 2023Q1

REPORT INFORMATION
  Report Type: Spontaneous
  Country: US (occurrence: US)
  Receive Date: 20230213
  Receipt Date: 20230213
  Transmission Date: 20230418
  Serious: Yes (Other)
  Sender: FDA-Public Use
  Company Number: US-GE HEALTHCARE-2023CSU000809

PATIENT
  Sex: Female
  Weight: 75.3 kg

DRUGS (2)
  1. VISIPAQUE [Suspect]
     Active Substance: IODIXANOL
     Indication: Computerised tomogram thorax
     Dosage: 100 ML, SINGLE
     Route: 042
     Dates: start: 20230202, end: 20230202
  2. VISIPAQUE [Suspect]
     Active Substance: IODIXANOL
     Indication: Pulmonary embolism

REACTIONS (2)
  - Extravasation [Not Recovered/Not Resolved]
  - Blister [Not Recovered/Not Resolved]

NARRATIVE: CASE EVENT DATE: 20230202
